FAERS Safety Report 21802103 (Version 1)
Quarter: 2022Q4

REPORT INFORMATION
  Report Type: Report from Study
  Country: US (occurrence: US)
  Receive Date: 20221230
  Receipt Date: 20221230
  Transmission Date: 20230113
  Serious: No
  Sender: FDA-Public Use
  Company Number: US-ACORDA-ACO_172067_2022

PATIENT
  Age: 71 Year
  Sex: Female
  Weight: 48.98 kg

DRUGS (7)
  1. INBRIJA [Suspect]
     Active Substance: LEVODOPA
     Indication: Parkinson^s disease
     Dosage: 2 DOSAGE FORM, PRN, NOT TO EXCEED 5 DOSES A DAY
     Dates: start: 20220304, end: 20220316
  2. INBRIJA [Suspect]
     Active Substance: LEVODOPA
     Indication: On and off phenomenon
     Dosage: 2 DOSAGE FORM (84 MG), PRN, NOT TO EXCEED 5 DOSES PER DAY
     Dates: start: 20220317
  3. CARBIDOPA\LEVODOPA [Concomitant]
     Active Substance: CARBIDOPA\LEVODOPA
     Indication: Product used for unknown indication
     Dosage: 4 TIMES 1-1/4 25-100
     Route: 065
  4. RYTARY [Concomitant]
     Active Substance: CARBIDOPA\LEVODOPA
     Indication: Product used for unknown indication
     Dosage: 36.25/ 145 MG, QD
     Route: 065
  5. NEUPRO [Concomitant]
     Active Substance: ROTIGOTINE
     Indication: Product used for unknown indication
     Dosage: 1 MILLIGRAM, 24 HOUR PATCH
     Route: 065
  6. ALLEGRA ALLERGY [Concomitant]
     Active Substance: FEXOFENADINE HYDROCHLORIDE
     Indication: Product used for unknown indication
     Dosage: 180 MILLIGRAM
     Route: 065
  7. VITAMIN B12 [Concomitant]
     Active Substance: CYANOCOBALAMIN
     Indication: Product used for unknown indication
     Dosage: 1000 CR
     Route: 065

REACTIONS (19)
  - Device use issue [Unknown]
  - Patient dissatisfaction with device [Unknown]
  - Product residue present [Unknown]
  - Prescribed underdose [Unknown]
  - Throat tightness [Unknown]
  - Abdominal pain upper [Unknown]
  - Abdominal discomfort [Not Recovered/Not Resolved]
  - Stomatitis [Unknown]
  - Unevaluable event [Not Recovered/Not Resolved]
  - Device use issue [Unknown]
  - Heart rate increased [Not Recovered/Not Resolved]
  - Rhinorrhoea [Unknown]
  - COVID-19 [Not Recovered/Not Resolved]
  - Dyspepsia [Unknown]
  - Parkinson^s disease [Unknown]
  - Drug ineffective [Unknown]
  - Chest discomfort [Unknown]
  - Cough [Not Recovered/Not Resolved]
  - Sputum discoloured [Unknown]

NARRATIVE: CASE EVENT DATE: 20220301
